FAERS Safety Report 4365760-7 (Version None)
Quarter: 2004Q2

REPORT INFORMATION
  Report Type: 
  Country: None (occurrence: None)
  Receive Date: 20040520
  Receipt Date: 20040506
  Transmission Date: 20050107
  Serious: Yes (Hospitalization)
  Sender: FDA-Public Use
  Company Number: 2004JP000899

PATIENT
  Age: 65 Year
  Sex: Male

DRUGS (1)
  1. PROTOPIC [Suspect]
     Indication: DERMATITIS ATOPIC
     Dosage: 0.10%, TOPICAL
     Route: 061

REACTIONS (13)
  - ALANINE AMINOTRANSFERASE INCREASED [None]
  - ASPARTATE AMINOTRANSFERASE INCREASED [None]
  - CONDITION AGGRAVATED [None]
  - DERMATITIS ATOPIC [None]
  - DRUG INEFFECTIVE [None]
  - DURAL ABSCESS [None]
  - NECK PAIN [None]
  - QUADRIPLEGIA [None]
  - SCRATCH [None]
  - SKIN INJURY [None]
  - SPONDYLOSIS [None]
  - STAPHYLOCOCCAL SEPSIS [None]
  - URINARY TRACT INFECTION [None]
